FAERS Safety Report 9869519 (Version 1)
Quarter: 2014Q1

REPORT INFORMATION
  Report Type: Spontaneous
  Country: CH (occurrence: None)
  Receive Date: 20140131
  Receipt Date: 20140131
  Transmission Date: 20141002
  Serious: Yes (Other)
  Sender: FDA-Public Use
  Company Number: 2014P1000614

PATIENT
  Age: 76 Year
  Sex: Female

DRUGS (9)
  1. LITHIUM [Suspect]
     Indication: HYPERTENSION
  2. VALSARTAN [Suspect]
     Route: 048
  3. SITAGLIPTAN [Concomitant]
  4. METFORMIN [Concomitant]
  5. ASPIRIN [Concomitant]
  6. OLANZAPINE [Concomitant]
  7. LORAZEPAM [Concomitant]
  8. FLURAZEPAM [Concomitant]
  9. ZOLPIDEM [Concomitant]

REACTIONS (10)
  - Overdose [None]
  - Toxicity to various agents [None]
  - Refusal of treatment by patient [None]
  - Mania [None]
  - Delusion [None]
  - Abnormal behaviour [None]
  - Confusional state [None]
  - Extrapyramidal disorder [None]
  - Anaemia [None]
  - CSF glucose increased [None]
